FAERS Safety Report 6855650-X (Version None)
Quarter: 2010Q3

REPORT INFORMATION
  Report Type: 
  Country: None (occurrence: None)
  Receive Date: 20100719
  Receipt Date: 20090629
  Transmission Date: 20110219
  Serious: No
  Sender: FDA-Public Use
  Company Number: US-KINGPHARMUSA00001-K200900766

PATIENT
  Sex: Female

DRUGS (2)
  1. LEVOXYL [Suspect]
     Indication: THYROID HORMONE REPLACEMENT THERAPY
     Dosage: 112 MCG, QD
     Route: 048
     Dates: start: 20080101
  2. LEVOXYL [Suspect]
     Dosage: UNK MCG, QD
     Route: 048
     Dates: start: 20070101, end: 20080101

REACTIONS (2)
  - ORAL DISCOMFORT [None]
  - SENSATION OF FOREIGN BODY [None]
